FAERS Safety Report 7333451-6 (Version None)
Quarter: 2011Q1

REPORT INFORMATION
  Report Type: 
  Country: None (occurrence: None)
  Receive Date: 20110304
  Receipt Date: 20110224
  Transmission Date: 20110831
  Serious: Yes (Hospitalization)
  Sender: FDA-Public Use
  Company Number: PHHO2011CH01553

PATIENT
  Sex: Male

DRUGS (2)
  1. SORAFENIB [Suspect]
     Indication: HEPATIC NEOPLASM MALIGNANT NON-RESECTABLE
     Dosage: 800 MG / DAY
     Route: 048
     Dates: start: 20110104, end: 20110117
  2. EVEROLIMUS [Suspect]
     Indication: HEPATIC NEOPLASM MALIGNANT NON-RESECTABLE
     Dosage: 5 MG /DAY
     Route: 048
     Dates: start: 20110105, end: 20110117

REACTIONS (3)
  - DIARRHOEA [None]
  - COLITIS [None]
  - DEHYDRATION [None]
